FAERS Safety Report 23683852 (Version 1)
Quarter: 2024Q1

REPORT INFORMATION
  Report Type: Report from Study
  Country: CN (occurrence: CN)
  Receive Date: 20240328
  Receipt Date: 20240328
  Transmission Date: 20240409
  Serious: Yes (Other)
  Sender: FDA-Public Use
  Company Number: CN-002147023-NVSC2021CN152309

PATIENT
  Age: 60 Year
  Sex: Male
  Weight: 71 kg

DRUGS (10)
  1. CISPLATIN [Suspect]
     Active Substance: CISPLATIN
     Dosage: 134 MG
     Route: 042
     Dates: start: 20210626
  2. CISPLATIN [Suspect]
     Active Substance: CISPLATIN
     Indication: B-cell lymphoma
     Dosage: 181 MG, ONCE/SINGLE
     Route: 042
     Dates: start: 20210602
  3. CYTARABINE [Suspect]
     Active Substance: CYTARABINE
     Dosage: 3580 MG, Q12H
     Route: 042
     Dates: start: 20210626
  4. CYTARABINE [Suspect]
     Active Substance: CYTARABINE
     Indication: B-cell lymphoma
     Dosage: 7240 MG, BID
     Route: 042
     Dates: start: 20210603
  5. DEXAMETHASONE [Suspect]
     Active Substance: DEXAMETHASONE
     Indication: B-cell lymphoma
     Dosage: 160 MG, QD
     Route: 048
     Dates: start: 20210602
  6. DEXAMETHASONE [Suspect]
     Active Substance: DEXAMETHASONE
     Dosage: 40 MG, QD
     Route: 048
     Dates: start: 20210626
  7. RITUXIMAB [Suspect]
     Active Substance: RITUXIMAB
     Dosage: 375MG/M 671.3MG ON DAY 0
     Route: 065
     Dates: start: 20210626
  8. RITUXIMAB [Suspect]
     Active Substance: RITUXIMAB
     Indication: B-cell lymphoma refractory
     Dosage: 678.8 MG, ONCE/SINGLE
     Route: 065
     Dates: start: 20210601
  9. DEXAMETHASONE SODIUM PHOSPHATE [Concomitant]
     Active Substance: DEXAMETHASONE PHOSPHATE\DEXAMETHASONE SODIUM PHOSPHATE
     Indication: Prophylaxis
     Dosage: UNK
     Route: 065
     Dates: start: 20210706, end: 20210706
  10. HAEMOCOAGULASE [Concomitant]
     Indication: Haemorrhage prophylaxis
     Dosage: UNK
     Route: 042

REACTIONS (2)
  - Thrombocytopenia [Recovered/Resolved]
  - Thrombocytopenia [Recovered/Resolved]

NARRATIVE: CASE EVENT DATE: 20210705
